FAERS Safety Report 6112229-5 (Version None)
Quarter: 2009Q1

REPORT INFORMATION
  Report Type: 
  Country: None (occurrence: None)
  Receive Date: 20090310
  Receipt Date: 20090304
  Transmission Date: 20090719
  Serious: Yes (Life-Threatening)
  Sender: FDA-Public Use
  Company Number: 2009-192646-NL

PATIENT
  Age: 74 Year
  Sex: Male

DRUGS (10)
  1. MIRTAZAPINE [Suspect]
     Dosage: 30 MG ORAL
     Route: 048
     Dates: start: 20081101, end: 20090203
  2. RISPERIDONE [Suspect]
     Dosage: 0.5 MG ORAL
     Route: 048
     Dates: start: 20090101, end: 20090203
  3. CLOMETHIAZOLE EDISILATE [Suspect]
     Dosage: 300 MG
     Dates: start: 20081101, end: 20090203
  4. CLORAZEPATE DIPOTASSIUM [Suspect]
     Dosage: 10 MG ORAL
     Route: 048
     Dates: end: 20090203
  5. VANCOMYCIN HYDROCHLORIDE [Suspect]
     Dosage: 500 MG BID INTRAVENOUS DRIP
     Route: 041
     Dates: start: 20090116
  6. HALOPERIDOL [Suspect]
     Dosage: DF ORAL
     Route: 048
     Dates: end: 20090203
  7. RAMIPRIL [Concomitant]
  8. ATENOLOL [Concomitant]
  9. PRAVASTATIN [Concomitant]
  10. PHENPROCOUMON [Concomitant]

REACTIONS (7)
  - CARDIAC ARREST [None]
  - CARDIAC DISORDER [None]
  - CORONARY ARTERY DISEASE [None]
  - LEFT ATRIAL DILATATION [None]
  - VENTRICULAR FIBRILLATION [None]
  - VENTRICULAR HYPERTROPHY [None]
  - VENTRICULAR HYPOKINESIA [None]
